FAERS Safety Report 8172901-2 (Version None)
Quarter: 2012Q1

REPORT INFORMATION
  Report Type: 
  Country: None (occurrence: None)
  Receive Date: 20120229
  Receipt Date: 20120223
  Transmission Date: 20120608
  Serious: Yes (Other)
  Sender: FDA-Public Use
  Company Number: DE-AMGEN-DEUSP2012011894

PATIENT
  Age: 68 Year
  Sex: Female

DRUGS (4)
  1. EPIRUBICIN [Concomitant]
     Indication: BREAST CANCER
  2. NEULASTA [Suspect]
     Indication: PROPHYLAXIS
  3. CYCLOPHOSPHAMIDE [Concomitant]
     Indication: BREAST CANCER
  4. NEUPOGEN [Suspect]
     Indication: NEUTROPENIA

REACTIONS (2)
  - NEUTROPENIA [None]
  - LEUKOPENIA [None]
